FAERS Safety Report 23517342 (Version 1)
Quarter: 2024Q1

REPORT INFORMATION
  Report Type: 
  Country: None (occurrence: None)
  Receive Date: 20240213
  Receipt Date: 20240213
  Transmission Date: 20240410
  Serious: No
  Sender: FDA-Public Use
  Company Number: US-ROCHE-2963996

PATIENT
  Weight: 88.3 kg

DRUGS (35)
  1. BEVACIZUMAB [Suspect]
     Active Substance: BEVACIZUMAB
     Dosage: ON 02/NOV/2021, HE RECEIVED MOST RECENT DOSE OF  IV BEVACIZUMAB (1325 MG)
     Dates: start: 20201110
  2. ATEZOLIZUMAB [Suspect]
     Active Substance: ATEZOLIZUMAB
     Dosage: ON 02/NOV/2021, HE RECEIVED MOST RECENT DOSE OF ATEZOLIZUMAB 1200 MG
     Dates: start: 20201110
  3. TIRAGOLUMAB [Suspect]
     Active Substance: TIRAGOLUMAB
     Dosage: ON 02/NOV/2021, HE RECEIVED MOST RECENT DOSE OF TIRAGOLUMAB (600 MG)
     Dates: start: 20201110
  4. INSULIN LISPRO [Concomitant]
     Active Substance: INSULIN LISPRO
  5. POTASSIUM CHLORIDE [Concomitant]
     Active Substance: POTASSIUM CHLORIDE
  6. FUROSEMIDE [Concomitant]
     Active Substance: FUROSEMIDE
     Dosage: YES
     Dates: start: 20200703
  7. FUROSEMIDE [Concomitant]
     Active Substance: FUROSEMIDE
     Dates: start: 20200530
  8. TRAMADOL [Concomitant]
     Active Substance: TRAMADOL\TRAMADOL HYDROCHLORIDE
     Dosage: YES
     Dates: start: 20200609
  9. ASPIRIN [Concomitant]
     Active Substance: ASPIRIN
     Dosage: YES
     Dates: start: 20200702
  10. CARVEDILOL [Concomitant]
     Active Substance: CARVEDILOL
     Dosage: YES
     Dates: start: 20200702
  11. SPIRONOLACTONE [Concomitant]
     Active Substance: SPIRONOLACTONE
     Dosage: YES
     Dates: start: 20200703
  12. GABAPENTIN [Concomitant]
     Active Substance: GABAPENTIN
     Dosage: YES
     Dates: start: 20200706
  13. ONDANSETRON [Concomitant]
     Active Substance: ONDANSETRON
     Dosage: YES
     Dates: start: 20201019
  14. MOTRIN [Concomitant]
     Active Substance: IBUPROFEN
     Dosage: YES
     Dates: start: 20210223
  15. MOTRIN [Concomitant]
     Active Substance: IBUPROFEN
     Dosage: YES
     Dates: start: 20230223, end: 20230223
  16. OXYCODONE [Concomitant]
     Active Substance: OXYCODONE\OXYCODONE HYDROCHLORIDE
     Dosage: YES
     Dates: start: 20210406
  17. CLOPIDOGREL [Concomitant]
     Active Substance: CLOPIDOGREL BISULFATE
     Dates: start: 20211120
  18. ATORVASTATIN [Concomitant]
     Active Substance: ATORVASTATIN
     Dates: start: 20211124
  19. INVOKANA [Concomitant]
     Active Substance: CANAGLIFLOZIN
     Dates: start: 20200706
  20. ENTRESTO [Concomitant]
     Active Substance: SACUBITRIL\VALSARTAN
     Dates: start: 20200706
  21. PROTONIX [Concomitant]
     Active Substance: PANTOPRAZOLE SODIUM
     Dates: start: 20200706
  22. COMPAZINE [Concomitant]
     Active Substance: PROCHLORPERAZINE MALEATE
     Dates: start: 20200706
  23. SODIUM CHLORIDE [Concomitant]
     Active Substance: SODIUM CHLORIDE
     Dates: start: 20211102, end: 20211102
  24. SODIUM CHLORIDE [Concomitant]
     Active Substance: SODIUM CHLORIDE
     Dates: start: 20220104, end: 20220104
  25. SODIUM CHLORIDE [Concomitant]
     Active Substance: SODIUM CHLORIDE
     Dates: start: 20220809, end: 20220809
  26. SODIUM CHLORIDE [Concomitant]
     Active Substance: SODIUM CHLORIDE
     Dates: start: 20220920, end: 20220920
  27. SODIUM CHLORIDE [Concomitant]
     Active Substance: SODIUM CHLORIDE
     Dates: start: 20221011, end: 20221011
  28. SODIUM CHLORIDE [Concomitant]
     Active Substance: SODIUM CHLORIDE
     Dates: start: 20221122, end: 20221122
  29. SODIUM CHLORIDE [Concomitant]
     Active Substance: SODIUM CHLORIDE
     Dates: start: 20221213, end: 20221213
  30. SODIUM CHLORIDE [Concomitant]
     Active Substance: SODIUM CHLORIDE
     Dates: start: 20230104, end: 20230104
  31. SODIUM CHLORIDE [Concomitant]
     Active Substance: SODIUM CHLORIDE
     Dates: start: 20230328, end: 20230328
  32. SODIUM CHLORIDE [Concomitant]
     Active Substance: SODIUM CHLORIDE
     Dates: start: 20230418, end: 20230418
  33. PREDNISOLONE [Concomitant]
     Active Substance: PREDNISOLONE
     Dates: start: 20221211, end: 20221216
  34. VIBRAMYCIN [Concomitant]
     Active Substance: DOXYCYCLINE
     Dates: start: 20221211, end: 20221221
  35. ALBUTEROL [Concomitant]
     Active Substance: ALBUTEROL
     Dosage: 90 INHALATION
     Dates: start: 20221211

REACTIONS (2)
  - Transient ischaemic attack [None]
  - Carotid artery stenosis [None]

NARRATIVE: CASE EVENT DATE: 20211120
